FAERS Safety Report 5940424-4 (Version None)
Quarter: 2008Q4

REPORT INFORMATION
  Report Type: 
  Country: None (occurrence: None)
  Receive Date: 20081104
  Receipt Date: 20081026
  Transmission Date: 20090506
  Serious: Yes (Other)
  Sender: FDA-Public Use
  Company Number: FR-GENENTECH-269776

PATIENT
  Sex: Female

DRUGS (1)
  1. XOLAIR [Suspect]
     Indication: ASTHMA
     Dosage: 375 MG, 2/WEEK
     Route: 058

REACTIONS (2)
  - ASTHMA [None]
  - DRUG INTOLERANCE [None]
